FAERS Safety Report 9746491 (Version 1)
Quarter: 2013Q4

REPORT INFORMATION
  Report Type: Spontaneous
  Country: US (occurrence: None)
  Receive Date: 20131209
  Receipt Date: 20131209
  Transmission Date: 20140711
  Serious: Yes (Other)
  Sender: FDA-Public Use
  Company Number: None

PATIENT
  Age: 34 Year
  Sex: Female
  Weight: 56.7 kg

DRUGS (1)
  1. KENALOG [Suspect]
     Indication: UPPER RESPIRATORY TRACT INFLAMMATION
     Dosage: GIVEN INTO/UNDER THE SKIN
     Route: 058

REACTIONS (3)
  - Injection site atrophy [None]
  - Wrong technique in drug usage process [None]
  - Injection site scar [None]
